FAERS Safety Report 13900272 (Version 2)
Quarter: 2017Q4

REPORT INFORMATION
  Report Type: Spontaneous
  Country: US (occurrence: US)
  Receive Date: 20170824
  Receipt Date: 20171109
  Transmission Date: 20180320
  Serious: Yes (Hospitalization, Other)
  Sender: FDA-Public Use
  Company Number: US-SAOL THERAPEUTICS-2017SAO01345

PATIENT
  Age: 52 Year
  Sex: Female
  Weight: 76.64 kg

DRUGS (2)
  1. BACLOFEN. [Suspect]
     Active Substance: BACLOFEN
     Indication: PAIN
     Dosage: 60.04 ?G, \DAY
     Route: 037
  2. MORPHINE [Suspect]
     Active Substance: MORPHINE
     Dosage: 2.402 MG, \DAY
     Route: 037

REACTIONS (16)
  - Drug withdrawal syndrome [Recovered/Resolved]
  - Cold sweat [Recovered/Resolved]
  - Off label use [Unknown]
  - Malaise [Recovered/Resolved]
  - Neuralgia [Recovered/Resolved]
  - Nerve root compression [Unknown]
  - Chills [Recovered/Resolved]
  - Complication associated with device [Recovered/Resolved]
  - Tremor [Recovered/Resolved]
  - Device damage [Recovered/Resolved]
  - Intervertebral disc protrusion [Unknown]
  - Hypoaesthesia [Recovered/Resolved]
  - Abdominal discomfort [Recovered/Resolved]
  - Peripheral coldness [Recovered/Resolved]
  - Pain [Recovered/Resolved]
  - Lumbar spinal stenosis [Unknown]

NARRATIVE: CASE EVENT DATE: 201602
